FAERS Safety Report 8520518-X (Version None)
Quarter: 2012Q3

REPORT INFORMATION
  Report Type: 
  Country: None (occurrence: None)
  Receive Date: 20120712
  Receipt Date: 20120712
  Transmission Date: 20120928
  Serious: Yes (Other)
  Sender: FDA-Public Use
  Company Number: 2012032738

PATIENT
  Age: 43 Year
  Sex: Female

DRUGS (2)
  1. HUMATE-P [Suspect]
     Indication: SURGERY
     Dates: start: 20120401
  2. HUMATE-P [Suspect]
     Indication: VON WILLEBRAND'S DISEASE
     Dates: start: 20120401

REACTIONS (5)
  - FATIGUE [None]
  - NASOPHARYNGITIS [None]
  - GENITAL HERPES [None]
  - TRANSMISSION OF AN INFECTIOUS AGENT VIA A MEDICINAL PRODUCT [None]
  - EPSTEIN-BARR VIRUS INFECTION [None]
